FAERS Safety Report 9509734 (Version 1)
Quarter: 2013Q3

REPORT INFORMATION
  Report Type: Spontaneous
  Country: US (occurrence: US)
  Receive Date: 20130909
  Receipt Date: 20130909
  Transmission Date: 20140515
  Serious: No
  Sender: FDA-Public Use
  Company Number: US-BRISTOL-MYERS SQUIBB COMPANY-18886341

PATIENT
  Age: 62 Year
  Sex: Female
  Weight: 96.6 kg

DRUGS (1)
  1. ABILIFY TABS 10 MG [Suspect]
     Indication: DEPRESSION
     Dosage: STARTED WITH 5MG DAILY?LAST DOSE IN MAY2013
     Dates: start: 20130402

REACTIONS (4)
  - Weight increased [Unknown]
  - Joint swelling [Unknown]
  - Sleep disorder [Unknown]
  - Wrong technique in drug usage process [Unknown]
